FAERS Safety Report 6453267-2 (Version None)
Quarter: 2009Q4

REPORT INFORMATION
  Report Type: 
  Country: None (occurrence: None)
  Receive Date: 20091117
  Receipt Date: 20091106
  Transmission Date: 20100525
  Serious: Yes (Hospitalization, Other)
  Sender: FDA-Public Use
  Company Number: 230409K09CAN

PATIENT
  Age: 62 Year
  Sex: Female

DRUGS (7)
  1. REBIF [Suspect]
     Indication: MULTIPLE SCLEROSIS
     Dosage: SEE IMAGE
     Route: 058
     Dates: start: 20071206, end: 20080830
  2. REBIF [Suspect]
     Indication: MULTIPLE SCLEROSIS
     Dosage: SEE IMAGE
     Route: 058
     Dates: start: 20090701, end: 20091023
  3. GABAPENTIN [Concomitant]
  4. LYRICA [Concomitant]
  5. SYNTHROID [Concomitant]
  6. EYESTILL (HYALURONATE SODIUM) (HYALURONATE SODIUM) [Concomitant]
  7. ALLERGY MEDICATION (ALLERGY MEDICATION) [Concomitant]

REACTIONS (9)
  - FACIAL BONES FRACTURE [None]
  - FALL [None]
  - FATIGUE [None]
  - INJECTION SITE ERYTHEMA [None]
  - INJECTION SITE INFECTION [None]
  - INJECTION SITE PAIN [None]
  - INJECTION SITE SWELLING [None]
  - INJECTION SITE WARMTH [None]
  - TRIGEMINAL NEURALGIA [None]
